FAERS Safety Report 10028004 (Version 1)
Quarter: 2014Q1

REPORT INFORMATION
  Report Type: Spontaneous
  Country: GB (occurrence: GB)
  Receive Date: 20140321
  Receipt Date: 20140321
  Transmission Date: 20141002
  Serious: Yes (Hospitalization)
  Sender: FDA-Public Use
  Company Number: GB-BAXTER-2014BAX014083

PATIENT
  Sex: Female

DRUGS (1)
  1. DIANEAL PD4 GLUCOSE 1.36% W/V / 13.6 MG/ML [Suspect]
     Indication: RENAL DISORDER
     Dosage: 2 BAGS
     Route: 033

REACTIONS (1)
  - Intestinal obstruction [Unknown]
